FAERS Safety Report 5280385-7 (Version None)
Quarter: 2007Q1

REPORT INFORMATION
  Report Type: 
  Country: None (occurrence: None)
  Receive Date: 20061229
  Receipt Date: 20060811
  Transmission Date: 20070707
  Serious: Yes (Other)
  Sender: FDA-Public Use
  Company Number: 2006UW16090

PATIENT
  Age: 69 Year
  Sex: Female
  Weight: 68.946 kg

DRUGS (3)
  1. CRESTOR [Suspect]
     Indication: HYPERCHOLESTEROLAEMIA
     Dosage: 10 MG QD PO
     Route: 048
     Dates: start: 20060201
  2. ASPIRIN [Concomitant]
  3. LASIX [Concomitant]

REACTIONS (2)
  - DYSURIA [None]
  - RENAL DISORDER [None]
